FAERS Safety Report 11700672 (Version 1)
Quarter: 2015Q4

REPORT INFORMATION
  Report Type: Spontaneous
  Country: US (occurrence: None)
  Receive Date: 20151104
  Receipt Date: 20151104
  Transmission Date: 20160304
  Serious: No
  Sender: FDA-Public Use
  Company Number: None

PATIENT
  Age: 34 Year
  Sex: Male

DRUGS (1)
  1. COPAXONE [Suspect]
     Active Substance: GLATIRAMER ACETATE
     Indication: MULTIPLE SCLEROSIS
     Dosage: SUBCUTANEOUS   DOSE FORM: INJECTABLE   FREQUENCY: 3 TIMES/WEEK
     Route: 058
     Dates: start: 201411

REACTIONS (2)
  - Injection site swelling [None]
  - Nausea [None]

NARRATIVE: CASE EVENT DATE: 20141101
